FAERS Safety Report 9465621 (Version 1)
Quarter: 2013Q3

REPORT INFORMATION
  Report Type: Spontaneous
  Country: US (occurrence: US)
  Receive Date: 20130820
  Receipt Date: 20130820
  Transmission Date: 20140515
  Serious: Yes (Other)
  Sender: FDA-Public Use
  Company Number: US-EISAI INC-E3810-06609-SPO-US

PATIENT
  Sex: Female
  Weight: 89 kg

DRUGS (1)
  1. ACIPHEX (RABEPRAZOLE) [Suspect]
     Indication: PRODUCT USED FOR UNKNOWN INDICATION
     Dosage: UNKNOWN
     Route: 048

REACTIONS (4)
  - Pulmonary embolism [Recovered/Resolved]
  - Neuropathy peripheral [Unknown]
  - Hypertension [Unknown]
  - Back pain [Recovered/Resolved]
